FAERS Safety Report 17137707 (Version 2)
Quarter: 2019Q4

REPORT INFORMATION
  Report Type: Spontaneous
  Country: BR (occurrence: BR)
  Receive Date: 20191211
  Receipt Date: 20191223
  Transmission Date: 20200122
  Serious: No
  Sender: FDA-Public Use
  Company Number: BR-SA-2019SA336800

PATIENT
  Age: 67 Year
  Sex: Female
  Weight: 79.8 kg

DRUGS (6)
  1. LANTUS [Suspect]
     Active Substance: INSULIN GLARGINE
     Indication: DIABETES MELLITUS
     Dosage: 20 IU, MORNING
     Route: 058
  2. TACROLIMUS. [Concomitant]
     Active Substance: TACROLIMUS
     Indication: IMMUNOSUPPRESSION
     Dosage: 3 TIMES A A DAY- 2 TABLETS IN MORNING AND 1 TABLET IN NIGHT
     Route: 048
     Dates: start: 20170221
  3. PROPRANOLOL [Concomitant]
     Active Substance: PROPRANOLOL HYDROCHLORIDE
     Indication: TREMOR
     Dosage: 2 TIMES TO DAY 1 TABLET IN MORNING AND 1 TABLET IN NIGHT
     Route: 048
  4. PANTOPRAZOLE [Concomitant]
     Active Substance: PANTOPRAZOLE
     Indication: TREMOR
     Dosage: 1 DF, QD
     Route: 048
  5. ROSUVAN [Concomitant]
     Indication: BLOOD CHOLESTEROL
     Dosage: 1 TABLET AT NIGHT AND 1 IN MORNING
     Route: 048
  6. ENALAPRIL MALEATE. [Concomitant]
     Active Substance: ENALAPRIL MALEATE
     Indication: BLOOD PRESSURE MEASUREMENT
     Dosage: 1 IN MORNING AND 1 IN NIGHT 12H IN 12 HOURS
     Route: 048

REACTIONS (3)
  - Product storage error [Unknown]
  - Tremor [Recovering/Resolving]
  - Liver operation [Unknown]
